FAERS Safety Report 14343135 (Version 1)
Quarter: 2018Q1

REPORT INFORMATION
  Report Type: Spontaneous
  Country: CN (occurrence: CN)
  Receive Date: 20180102
  Receipt Date: 20180102
  Transmission Date: 20180509
  Serious: Yes (Death)
  Sender: FDA-Public Use
  Company Number: PHHY2017CN190827

PATIENT
  Age: 43 Year
  Sex: Male

DRUGS (4)
  1. FK 506 [Suspect]
     Active Substance: TACROLIMUS
     Indication: PARANEOPLASTIC PEMPHIGUS
     Dosage: UNK
     Route: 047
  2. CYCLOSPORIN A [Concomitant]
     Active Substance: CYCLOSPORINE
     Indication: IMMUNOSUPPRESSANT DRUG THERAPY
     Dosage: UNK
     Route: 065
  3. ALBUMIN BOVINE [Suspect]
     Active Substance: ALBUMIN BOVINE
     Indication: PARANEOPLASTIC PEMPHIGUS
     Dosage: UNK UNK, QHS
     Route: 047
  4. TOBRAMYCIN AND DEXAMETHASONE [Suspect]
     Active Substance: DEXAMETHASONE\TOBRAMYCIN
     Indication: PARANEOPLASTIC PEMPHIGUS
     Dosage: UNK UNK, QID
     Route: 047

REACTIONS (4)
  - Condition aggravated [Fatal]
  - Paraneoplastic pemphigus [Fatal]
  - Eye disorder [Fatal]
  - Product use in unapproved indication [Unknown]
